FAERS Safety Report 6303191-0 (Version None)
Quarter: 2009Q3

REPORT INFORMATION
  Report Type: 
  Country: None (occurrence: None)
  Receive Date: 20090810
  Receipt Date: 20090417
  Transmission Date: 20100115
  Serious: No
  Sender: FDA-Public Use
  Company Number: A0679822A

PATIENT
  Sex: Male
  Weight: 2.7 kg

DRUGS (4)
  1. PAXIL [Suspect]
     Indication: DRUG USE FOR UNKNOWN INDICATION
  2. ZOLOFT [Concomitant]
  3. XANAX [Concomitant]
  4. PROZAC [Concomitant]

REACTIONS (2)
  - BRONCHIAL HYPERREACTIVITY [None]
  - DRUG EXPOSURE DURING PREGNANCY [None]
